FAERS Safety Report 23115884 (Version 1)
Quarter: 2023Q4

REPORT INFORMATION
  Report Type: Spontaneous
  Country: US (occurrence: None)
  Receive Date: 20231024
  Receipt Date: 20231024
  Transmission Date: 20240110
  Serious: Yes (Hospitalization)
  Sender: FDA-Public Use
  Company Number: None

PATIENT
  Age: 70 Year
  Sex: Male

DRUGS (14)
  1. ORENCIA [Suspect]
     Active Substance: ABATACEPT
     Dosage: FREQUENCY : WEEKLY;?
     Route: 058
     Dates: start: 20230711
  2. AMLODIPINE [Concomitant]
     Active Substance: AMLODIPINE BESYLATE
  3. ARAVA [Concomitant]
     Active Substance: LEFLUNOMIDE
  4. ASPIRIN [Concomitant]
     Active Substance: ASPIRIN
  5. BASAGLAR [Concomitant]
     Active Substance: INSULIN GLARGINE
  6. FISH OIL [Concomitant]
     Active Substance: FISH OIL
  7. FOLIC ACID [Concomitant]
     Active Substance: FOLIC ACID
  8. GLIPIZIDE [Concomitant]
     Active Substance: GLIPIZIDE
  9. JARDIANCE [Concomitant]
     Active Substance: EMPAGLIFLOZIN
  10. LISINOPRIL [Concomitant]
     Active Substance: LISINOPRIL
  11. MELOXICAM [Concomitant]
     Active Substance: MELOXICAM
  12. METHOTREXATE [Concomitant]
     Active Substance: METHOTREXATE
  13. METOPROLOL TARTRATE [Concomitant]
     Active Substance: METOPROLOL TARTRATE
  14. ROSUVASTATIN [Concomitant]
     Active Substance: ROSUVASTATIN

REACTIONS (4)
  - Bacterial infection [None]
  - Pain [None]
  - Condition aggravated [None]
  - Loss of personal independence in daily activities [None]

NARRATIVE: CASE EVENT DATE: 20231014
